FAERS Safety Report 24726679 (Version 1)
Quarter: 2024Q4

REPORT INFORMATION
  Report Type: Report from Study
  Country: US (occurrence: US)
  Receive Date: 20241212
  Receipt Date: 20241212
  Transmission Date: 20250115
  Serious: Yes (Hospitalization)
  Sender: GILEAD
  Company Number: US-GILEAD-2024-0693165

PATIENT
  Age: 70 Year
  Sex: Female

DRUGS (1)
  1. SACITUZUMAB GOVITECAN-HZIY [Suspect]
     Active Substance: SACITUZUMAB GOVITECAN-HZIY
     Indication: Breast cancer female
     Dosage: INFUSE 1098MG INTRAVENOUSLY OVER 1 HOUR ON DAYS 1 AND 8 EVERY 21 DAYS.
     Route: 042
     Dates: start: 20241119

REACTIONS (7)
  - Blood electrolytes decreased [Unknown]
  - Metabolic disorder [Unknown]
  - Blood sodium decreased [Unknown]
  - White blood cell count decreased [Unknown]
  - Peripheral swelling [Unknown]
  - Pain in extremity [Unknown]
  - Diarrhoea [Unknown]
